FAERS Safety Report 20488624 (Version 2)
Quarter: 2022Q2

REPORT INFORMATION
  Report Type: Report from Study
  Country: UA (occurrence: UA)
  Receive Date: 20220218
  Receipt Date: 20220518
  Transmission Date: 20220721
  Serious: Yes (Hospitalization)
  Sender: FDA-Public Use
  Company Number: UA-NOVARTISPH-NVSC2021UA296999

PATIENT
  Age: 22 Year
  Sex: Male
  Weight: 64.5 kg

DRUGS (31)
  1. INTERFERON BETA-1A [Suspect]
     Active Substance: INTERFERON BETA-1A
     Indication: Multiple sclerosis
     Route: 048
  2. PLACEBO [Suspect]
     Active Substance: UNSPECIFIED INGREDIENT
     Indication: Multiple sclerosis
     Dosage: UNK
     Route: 048
  3. FINGOLIMOD [Suspect]
     Active Substance: FINGOLIMOD
     Indication: Multiple sclerosis
     Dosage: 0.5 MG, QD
     Route: 048
     Dates: start: 20170704, end: 20211222
  4. IBUPROFEN [Concomitant]
     Active Substance: IBUPROFEN
     Indication: Headache
     Dosage: 400 MG, PRN
     Route: 048
     Dates: start: 20210429, end: 20211218
  5. BUPIVACAINE [Concomitant]
     Active Substance: BUPIVACAINE
     Indication: Product used for unknown indication
     Dosage: UNK
     Route: 058
     Dates: start: 20211223
  6. LEVOFLOXACIN [Concomitant]
     Active Substance: LEVOFLOXACIN
     Indication: Anogenital warts
     Dosage: 500 MG, QD
     Route: 048
     Dates: start: 20211222, end: 20211228
  7. CEFTRIAXONE [Concomitant]
     Active Substance: CEFTRIAXONE
     Indication: Anogenital warts
     Dosage: 1 G, BID
     Route: 042
     Dates: start: 20211222, end: 20211228
  8. METRONIDAZOLE [Concomitant]
     Active Substance: METRONIDAZOLE
     Indication: Anogenital warts
     Dosage: 100 ML, BID
     Route: 042
     Dates: start: 20211222, end: 20211228
  9. FLAMIDEZ [Concomitant]
     Indication: Anogenital warts
     Dosage: 1 DOSAGE FORM, BID
     Route: 048
     Dates: start: 20211221, end: 20211228
  10. PLATYPHYLLINE [Concomitant]
     Indication: Anogenital warts
     Dosage: 1 ML
     Route: 030
     Dates: start: 20211222, end: 20211228
  11. PAPAVERINE [Concomitant]
     Active Substance: PAPAVERINE
     Indication: Anogenital warts
     Dosage: 1 ML
     Route: 030
     Dates: start: 20211222, end: 20211228
  12. ANALGIN [Concomitant]
     Indication: Anogenital warts
     Dosage: 2 %
     Route: 030
     Dates: start: 20211222, end: 20211228
  13. DIPHENHYDRAMINE [Concomitant]
     Active Substance: DIPHENHYDRAMINE
     Indication: Anogenital warts
     Dosage: 1 ML
     Route: 030
     Dates: start: 20211222, end: 20211228
  14. NALBUPHINE [Concomitant]
     Active Substance: NALBUPHINE
     Indication: Anogenital warts
     Dosage: 1 ML
     Route: 030
     Dates: start: 20211222, end: 20211228
  15. KETOROLAC TROMETHAMINE [Concomitant]
     Active Substance: KETOROLAC TROMETHAMINE
     Indication: Anogenital warts
     Dosage: 1 ML
     Route: 030
     Dates: start: 20211222, end: 20211228
  16. DIOXYSOL [Concomitant]
     Indication: Anogenital warts
     Dosage: UNK, QD
     Route: 065
     Dates: start: 20211222, end: 20211228
  17. VISHNEVSKY [Concomitant]
     Indication: Product used for unknown indication
     Dosage: UNK, QD
     Route: 065
  18. CALENDULA [Concomitant]
     Active Substance: CALENDULA OFFICINALIS FLOWERING TOP
     Indication: Product used for unknown indication
     Route: 065
  19. TOBRADEX [Concomitant]
     Active Substance: DEXAMETHASONE\TOBRAMYCIN
     Indication: Product used for unknown indication
     Route: 065
  20. CHLOROPYRAMINE HYDROCHLORIDE [Concomitant]
     Active Substance: CHLOROPYRAMINE HYDROCHLORIDE
     Indication: Product used for unknown indication
     Route: 065
  21. LORATADINE [Concomitant]
     Active Substance: LORATADINE
     Indication: Product used for unknown indication
     Route: 065
  22. ISLA-MOOS [Concomitant]
     Indication: Product used for unknown indication
     Route: 065
  23. AMOXIL [Concomitant]
     Active Substance: AMOXICILLIN
     Indication: Product used for unknown indication
     Route: 065
  24. FARINGOSEPT [Concomitant]
     Indication: Product used for unknown indication
     Route: 065
  25. PULMICORT TURBUHALER [Concomitant]
     Active Substance: BUDESONIDE
     Indication: Product used for unknown indication
     Route: 065
  26. DECASAN [Concomitant]
     Indication: Product used for unknown indication
     Route: 065
  27. DEFLU [Concomitant]
     Indication: Product used for unknown indication
     Route: 065
  28. DEQUALINIUM CHLORIDE [Concomitant]
     Active Substance: DEQUALINIUM CHLORIDE
     Indication: Product used for unknown indication
     Route: 065
  29. AMBROXOL HYDROCHLORIDE [Concomitant]
     Active Substance: AMBROXOL HYDROCHLORIDE
     Indication: Product used for unknown indication
     Route: 065
  30. GLENCET [Concomitant]
     Indication: Product used for unknown indication
     Route: 065
  31. HERBALS [Concomitant]
     Active Substance: HERBALS
     Indication: Product used for unknown indication
     Route: 065

REACTIONS (1)
  - Anogenital warts [Recovered/Resolved]

NARRATIVE: CASE EVENT DATE: 20211222
